FAERS Safety Report 4284782-8 (Version None)
Quarter: 2004Q1

REPORT INFORMATION
  Report Type: 
  Country: None (occurrence: None)
  Receive Date: 20040202
  Receipt Date: 20040122
  Transmission Date: 20041129
  Serious: Yes (Hospitalization, Other)
  Sender: FDA-Public Use
  Company Number: JP-JNJFOC-20031201566

PATIENT
  Age: 35 Year
  Sex: Male

DRUGS (13)
  1. RISPERDAL [Suspect]
     Indication: OBSESSIVE-COMPULSIVE DISORDER
     Dosage: SEE IMAGE
     Route: 048
     Dates: start: 20020604, end: 20030317
  2. RISPERDAL [Suspect]
     Indication: OBSESSIVE-COMPULSIVE DISORDER
     Dosage: SEE IMAGE
     Route: 048
     Dates: start: 20030311, end: 20030317
  3. RISPERDAL [Suspect]
     Indication: OBSESSIVE-COMPULSIVE DISORDER
     Dosage: SEE IMAGE
     Route: 048
     Dates: start: 20030329, end: 20030623
  4. RISPERDAL [Suspect]
     Indication: OBSESSIVE-COMPULSIVE DISORDER
     Dosage: SEE IMAGE
     Route: 048
     Dates: start: 20030624, end: 20030909
  5. RISPERDAL [Suspect]
     Indication: OBSESSIVE-COMPULSIVE DISORDER
     Dosage: SEE IMAGE
     Route: 048
     Dates: start: 20030910, end: 20031202
  6. RISPERDAL [Suspect]
     Indication: OBSESSIVE-COMPULSIVE DISORDER
     Dosage: SEE IMAGE
     Route: 048
     Dates: start: 20031203
  7. PAROXETINE HCL [Suspect]
     Indication: OBSESSIVE-COMPULSIVE DISORDER
     Dosage: SEE IMAGE
     Route: 048
     Dates: start: 20030910
  8. FLUNITRAZEPAM (FLUNITRAZEPAM) [Concomitant]
  9. VEGETAMIN - B (VEGETAMIN A) [Concomitant]
  10. BIPERIDEN HYDROCHLORIDE TAB [Concomitant]
  11. COLD MEDICINE (COLD CAPSULES) [Concomitant]
  12. DIAZEPAM [Concomitant]
  13. LACTATED RINGER'S SOLUTION (RINGER ^MERCK^) [Concomitant]

REACTIONS (15)
  - ASTHENIA [None]
  - BLOOD CREATINE PHOSPHOKINASE INCREASED [None]
  - CONDITION AGGRAVATED [None]
  - DIZZINESS [None]
  - DRUG INEFFECTIVE [None]
  - GAIT DISTURBANCE [None]
  - HYPOAESTHESIA [None]
  - IRRITABILITY [None]
  - MALAISE [None]
  - OBSESSIVE-COMPULSIVE DISORDER [None]
  - PHARYNGOLARYNGEAL PAIN [None]
  - SALIVARY HYPERSECRETION [None]
  - SEROTONIN SYNDROME [None]
  - UPPER RESPIRATORY TRACT INFECTION [None]
  - URINARY INCONTINENCE [None]
